FAERS Safety Report 8563352-7 (Version None)
Quarter: 2012Q3

REPORT INFORMATION
  Report Type: 
  Country: None (occurrence: None)
  Receive Date: 20120802
  Receipt Date: 20120731
  Transmission Date: 20120928
  Serious: No
  Sender: FDA-Public Use
  Company Number: US-AMGEN-USASP2012047749

PATIENT
  Age: 32 Year
  Sex: Female

DRUGS (1)
  1. ENBREL [Suspect]
     Indication: ANKYLOSING SPONDYLITIS
     Dosage: 50 MG, QWK
     Dates: start: 20110921

REACTIONS (7)
  - NAUSEA [None]
  - PYREXIA [None]
  - CHILLS [None]
  - FATIGUE [None]
  - MYALGIA [None]
  - ABDOMINAL PAIN UPPER [None]
  - HEADACHE [None]
